FAERS Safety Report 7914612-1 (Version None)
Quarter: 2011Q4

REPORT INFORMATION
  Report Type: 
  Country: None (occurrence: None)
  Receive Date: 20111115
  Receipt Date: 20111107
  Transmission Date: 20120403
  Serious: Yes (Death, Hospitalization)
  Sender: FDA-Public Use
  Company Number: PHHY2011KP099025

PATIENT
  Age: 68 Year
  Sex: Male

DRUGS (1)
  1. IMATINIB [Suspect]
     Indication: CHRONIC MYELOID LEUKAEMIA
     Dosage: 400 MG, PER DAY

REACTIONS (15)
  - LUNG NEOPLASM [None]
  - PULMONARY FUNCTION TEST ABNORMAL [None]
  - BLOOD PRESSURE INCREASED [None]
  - RESPIRATORY DISORDER [None]
  - VITAL CAPACITY DECREASED [None]
  - LUNG INFILTRATION [None]
  - DYSPNOEA [None]
  - RALES [None]
  - COUGH [None]
  - PULMONARY OEDEMA [None]
  - DEATH [None]
  - INTERSTITIAL LUNG DISEASE [None]
  - PLEURAL FIBROSIS [None]
  - PRODUCTIVE COUGH [None]
  - GENERAL PHYSICAL HEALTH DETERIORATION [None]
